FAERS Safety Report 6936750-2 (Version None)
Quarter: 2010Q3

REPORT INFORMATION
  Report Type: 
  Country: None (occurrence: None)
  Receive Date: 20100818
  Receipt Date: 20100804
  Transmission Date: 20110219
  Serious: Yes (Hospitalization)
  Sender: FDA-Public Use
  Company Number: DSA_43687_2010

PATIENT
  Age: 67 Year
  Sex: Male

DRUGS (14)
  1. ENALAPRIL MALEATE [Suspect]
     Indication: HYPERTENSION
     Dosage: (5 MG QD ORAL)
     Route: 048
     Dates: end: 20100325
  2. ALVEDON [Concomitant]
  3. THROMBYL [Concomitant]
  4. LIPITOR [Concomitant]
  5. DIAZEPAM [Concomitant]
  6. IMPUGAN [Concomitant]
  7. DAKTACORT [Concomitant]
  8. IMDUR [Concomitant]
  9. LAKTULOSE [Concomitant]
  10. NITROMEX [Concomitant]
  11. SUSCARD [Concomitant]
  12. SPIRONOLACTONE [Concomitant]
  13. TRADOLAN [Concomitant]
  14. WARAN [Concomitant]

REACTIONS (8)
  - ABDOMINAL PAIN [None]
  - CHEST PAIN [None]
  - CONSTIPATION [None]
  - DRUG HYPERSENSITIVITY [None]
  - DYSPNOEA [None]
  - LARYNGEAL OEDEMA [None]
  - RALES [None]
  - TONGUE OEDEMA [None]
